FAERS Safety Report 5107365-6 (Version None)
Quarter: 2006Q3

REPORT INFORMATION
  Report Type: 
  Country: None (occurrence: None)
  Receive Date: 20060914
  Receipt Date: 20060906
  Transmission Date: 20061208
  Serious: Yes (Disabling, Other)
  Sender: FDA-Public Use
  Company Number: 2006107678

PATIENT
  Age: 56 Year
  Sex: Female
  Weight: 65.318 kg

DRUGS (3)
  1. LIPITOR [Suspect]
     Indication: BLOOD CHOLESTEROL INCREASED
     Dosage: 10 MG (10 MG, 1 IN 1 D)
     Dates: start: 20050101
  2. TOPROL-XL [Concomitant]
  3. MULTIVITAMIN [Concomitant]

REACTIONS (7)
  - ABASIA [None]
  - ACTIVITIES OF DAILY LIVING IMPAIRED [None]
  - ASTHENIA [None]
  - DYSSTASIA [None]
  - FEELING ABNORMAL [None]
  - MYALGIA [None]
  - PAIN [None]
